FAERS Safety Report 5630117-5 (Version None)
Quarter: 2008Q1

REPORT INFORMATION
  Report Type: 
  Country: None (occurrence: None)
  Receive Date: 20080218
  Receipt Date: 20080213
  Transmission Date: 20080703
  Serious: Yes (Death, Other)
  Sender: FDA-Public Use
  Company Number: PHBS2008CH01275

PATIENT
  Age: 78 Year
  Sex: Female

DRUGS (8)
  1. ACLASTA [Suspect]
     Indication: OSTEOPOROSIS
     Dosage: 5 MG, ONCE/SINGLE
     Dates: start: 20080107
  2. TRIATEC [Concomitant]
     Dosage: 5 MG/DAY
  3. ASPIRIN [Concomitant]
     Dosage: 100 MG/DAY
  4. ISOPTIN - SLOW RELEASE [Concomitant]
     Dosage: 120 MG/DAY
  5. CALCIMAGON [Concomitant]
  6. CHONDROSULF [Concomitant]
  7. DAFALGAN [Concomitant]
     Dosage: 1 G
     Route: 048
     Dates: start: 20080107, end: 20080107
  8. BRUFEN [Concomitant]
     Dosage: 800 MG/DAY

REACTIONS (3)
  - CARDIAC DEATH [None]
  - MALAISE [None]
  - NAUSEA [None]
